FAERS Safety Report 11356706 (Version 1)
Quarter: 2015Q3

REPORT INFORMATION
  Report Type: Spontaneous
  Country: US (occurrence: US)
  Receive Date: 20150803
  Receipt Date: 20150803
  Transmission Date: 20151125
  Serious: No
  Sender: FDA-Public Use
  Company Number: US-ELI_LILLY_AND_COMPANY-US201209007930

PATIENT
  Age: 62 Year
  Sex: Male

DRUGS (7)
  1. VITAMIN B12 [Concomitant]
     Active Substance: CYANOCOBALAMIN
  2. CALCIUM CARBONATE. [Concomitant]
     Active Substance: CALCIUM CARBONATE
  3. ZYPREXA [Suspect]
     Active Substance: OLANZAPINE
     Indication: DELUSIONAL DISORDER, UNSPECIFIED TYPE
     Dosage: 2.5 MG, QD
     Dates: start: 1999, end: 20120912
  4. OLANZAPINE. [Concomitant]
     Active Substance: OLANZAPINE
  5. ZYPREXA [Suspect]
     Active Substance: OLANZAPINE
     Dosage: 1.25 MG, BID
     Dates: start: 20120918
  6. KETOTIFEN [Concomitant]
     Active Substance: KETOTIFEN
     Indication: CONJUNCTIVITIS ALLERGIC
  7. LEVOTHYROXINE. [Concomitant]
     Active Substance: LEVOTHYROXINE

REACTIONS (8)
  - Drug withdrawal syndrome [Unknown]
  - Tremor [Unknown]
  - Anxiety [Unknown]
  - Hyperhidrosis [Unknown]
  - Conjunctivitis allergic [Unknown]
  - Hypersensitivity [Unknown]
  - Nausea [Unknown]
  - Muscle rigidity [Unknown]
